FAERS Safety Report 13274450 (Version 1)
Quarter: 2017Q1

REPORT INFORMATION
  Report Type: Report from Study
  Country: IT (occurrence: IT)
  Receive Date: 20170227
  Receipt Date: 20170227
  Transmission Date: 20170428
  Serious: Yes (Death, Hospitalization, Other)
  Sender: FDA-Public Use
  Company Number: IT-MYLANLABS-2017M1010806

PATIENT

DRUGS (3)
  1. LENALIDOMIDE [Suspect]
     Active Substance: LENALIDOMIDE
     Indication: MANTLE CELL LYMPHOMA
     Dosage: 25 MG/DAY ON DAYS 1-21 OF EACH 28-DAY CYCLE
     Route: 048
  2. DEXAMETHASONE. [Suspect]
     Active Substance: DEXAMETHASONE
     Indication: MANTLE CELL LYMPHOMA
     Dosage: 40 MG/DAY ON DAYS 1, 8, 15 AND 22
     Route: 048
  3. ENOXAPARIN SODIUM. [Concomitant]
     Active Substance: ENOXAPARIN SODIUM
     Indication: THROMBOSIS PROPHYLAXIS
     Dosage: 4000 U DAILY DURING FIRST THREE MONTHS OF THERAPY
     Route: 058

REACTIONS (4)
  - Acute respiratory failure [Unknown]
  - Pyrexia [Unknown]
  - Hypotension [Unknown]
  - Death [Fatal]
